FAERS Safety Report 5611096-3 (Version None)
Quarter: 2008Q1

REPORT INFORMATION
  Report Type: 
  Country: None (occurrence: None)
  Receive Date: 20080129
  Receipt Date: 20080116
  Transmission Date: 20080703
  Serious: Yes (Other)
  Sender: FDA-Public Use
  Company Number: AZAUS200800017

PATIENT
  Age: 53 Year
  Sex: Female
  Weight: 57 kg

DRUGS (22)
  1. VIDAZA [Suspect]
     Indication: ACUTE MYELOID LEUKAEMIA
     Dosage: (32 MG/M2, DAILY X 5 DAYS), SUBCUTANEOUS
     Route: 058
     Dates: start: 20080114, end: 20080115
  2. PENTAMIDINE ISETHIONATE [Suspect]
     Dosage: 240 MG, EVERY 3 WEEKS), INTRAVENOUS
     Route: 042
     Dates: start: 20071108, end: 20080111
  3. POSACONAZOLE [Suspect]
     Dosage: (400 MG, TWICE DAILY), ORAL
     Route: 048
     Dates: start: 20071010, end: 20080115
  4. MYLOTARG [Suspect]
     Indication: ACUTE MYELOID LEUKAEMIA
     Dosage: (3.2 MG, ONCE DAILY), INTRAVENOUS
     Route: 042
     Dates: start: 20070929, end: 20070929
  5. FLUDARABINE PHOSPHATE [Suspect]
     Indication: ACUTE MYELOID LEUKAEMIA
     Dosage: (46 MG, DAILY X 4 DAYS), INTRAVENOUS
     Route: 042
     Dates: start: 20071006, end: 20071009
  6. MELPHALAN (MELPHALAN) [Suspect]
     Indication: ACUTE MYELOID LEUKAEMIA
     Dosage: (214 MG, ONCE DAILY), INTRAVENOUS
     Route: 042
     Dates: start: 20071009, end: 20071009
  7. ATIVAN [Concomitant]
  8. CALCIUM GLUCONATE [Concomitant]
  9. CARBONATE (CALCIUM CARBONATE) [Concomitant]
  10. FOLIC ACID [Concomitant]
  11. IMODIUM [Concomitant]
  12. KYTRIL [Concomitant]
  13. LEXAPRO [Concomitant]
  14. LISINOPRIL [Concomitant]
  15. MAGNESIUM (MAGNESIUM) [Concomitant]
  16. NEXIUM [Concomitant]
  17. NORVASC [Concomitant]
  18. PROPOXYPHENE (DEXTROPROPOXYPHENE) [Concomitant]
  19. REMERON [Concomitant]
  20. TACROLIMUS [Concomitant]
  21. TRIAMCINOLONE ACETONIDE [Concomitant]
  22. ZYRTEC [Concomitant]

REACTIONS (1)
  - HEPATITIS [None]
